FAERS Safety Report 8609350-6 (Version None)
Quarter: 2012Q3

REPORT INFORMATION
  Report Type: 
  Country: None (occurrence: None)
  Receive Date: 20120821
  Receipt Date: 20120716
  Transmission Date: 20120928
  Serious: No
  Sender: FDA-Public Use
  Company Number: ES-009507513-1207ESP007019

PATIENT

DRUGS (2)
  1. RISPERIDONE [Concomitant]
     Route: 030
  2. SYCREST [Suspect]
     Indication: BIPOLAR I DISORDER
     Dosage: 10 MG, BID
     Route: 060
     Dates: start: 20120101

REACTIONS (2)
  - HYPOTENSION [None]
  - DRUG INEFFECTIVE [None]
